FAERS Safety Report 4734579-7 (Version None)
Quarter: 2005Q3

REPORT INFORMATION
  Report Type: 
  Country: None (occurrence: None)
  Receive Date: 20050729
  Receipt Date: 20050715
  Transmission Date: 20060218
  Serious: Yes (Hospitalization, Other)
  Sender: FDA-Public Use
  Company Number: USA-2003-0009537

PATIENT
  Age: 41 Year
  Sex: Female
  Weight: 63 kg

DRUGS (36)
  1. OXYCONTIN [Suspect]
     Indication: PAIN
     Dosage: SEE IMAGE
     Route: 048
     Dates: start: 20000801, end: 20030101
  2. WELLBUTRIN [Concomitant]
  3. VIOXX [Concomitant]
  4. ZANAFLEX [Concomitant]
  5. PRILOSEC [Concomitant]
  6. COMPAZINE [Concomitant]
  7. SENOKOT [Concomitant]
  8. KLONOPIN [Concomitant]
  9. FLEXERIL [Concomitant]
  10. BACLOFEN [Concomitant]
  11. DULCOLAX [Concomitant]
  12. CIPRO [Concomitant]
  13. BEXTRA [Concomitant]
  14. PHENERGAN                   (PROMETHAZINE HYDROCHLORIDE) [Concomitant]
  15. ALBUTEROL [Concomitant]
  16. TYLENOL (CAPLET) [Concomitant]
  17. SOLU-MEDROL [Concomitant]
  18. TORADOL [Concomitant]
  19. ZANTAC [Concomitant]
  20. SYNTHROID [Concomitant]
  21. PREVACID [Concomitant]
  22. REMERON [Concomitant]
  23. RISPERDAL [Concomitant]
  24. ADVAIR DISKUS                   (FLUTICASONE PROPIONATE, SALMETEROL XI [Concomitant]
  25. LOCREN      (BETAXOLOL) [Concomitant]
  26. HYDROCHLOROTHIAZIDE [Concomitant]
  27. DAYPRO [Concomitant]
  28. EFFEXOR [Concomitant]
  29. REGLAN [Concomitant]
  30. ^ADAVAN^ [Concomitant]
  31. LEVAQUIN [Concomitant]
  32. MACROBID [Concomitant]
  33. METHADONE (METHADONE) [Concomitant]
  34. DEMEROL [Concomitant]
  35. BENADRYL [Concomitant]
  36. VISTARIL [Concomitant]

REACTIONS (67)
  - ABDOMINAL PAIN UPPER [None]
  - AMENORRHOEA [None]
  - ANOREXIA [None]
  - ANXIETY [None]
  - ARTHRALGIA [None]
  - ASTHENIA [None]
  - ASTHMA [None]
  - BACK PAIN [None]
  - BLOOD ALKALINE PHOSPHATASE INCREASED [None]
  - BONE PAIN [None]
  - BURNING SENSATION [None]
  - BUTTOCK PAIN [None]
  - CARDIAC FAILURE CONGESTIVE [None]
  - CHEST PAIN [None]
  - CHILLS [None]
  - CONJUNCTIVITIS [None]
  - CONSTIPATION [None]
  - COUGH [None]
  - DEPRESSION [None]
  - DIARRHOEA [None]
  - DIZZINESS [None]
  - DRUG DEPENDENCE [None]
  - DRUG INTOLERANCE [None]
  - DRUG TOLERANCE [None]
  - DRUG WITHDRAWAL SYNDROME [None]
  - DYSARTHRIA [None]
  - DYSPHAGIA [None]
  - DYSPNOEA [None]
  - DYSURIA [None]
  - EAR PAIN [None]
  - EYE DISCHARGE [None]
  - EYE SWELLING [None]
  - FACIAL PAIN [None]
  - FALL [None]
  - FATIGUE [None]
  - FLANK PAIN [None]
  - FLUID RETENTION [None]
  - GASTRITIS [None]
  - HAEMORRHOIDS [None]
  - HALLUCINATION, AUDITORY [None]
  - HEADACHE [None]
  - HYPERHIDROSIS [None]
  - HYPOAESTHESIA [None]
  - HYPOTHYROIDISM [None]
  - INADEQUATE ANALGESIA [None]
  - LOSS OF LIBIDO [None]
  - MAJOR DEPRESSION [None]
  - MENTAL DISORDER [None]
  - MIDDLE INSOMNIA [None]
  - NAUSEA [None]
  - NECK PAIN [None]
  - OEDEMA PERIPHERAL [None]
  - PAIN [None]
  - PAIN IN EXTREMITY [None]
  - PERSONALITY DISORDER [None]
  - PHARYNGITIS [None]
  - PSYCHOTIC DISORDER [None]
  - RENAL PAIN [None]
  - RETCHING [None]
  - SELF-INJURIOUS IDEATION [None]
  - SOMNOLENCE [None]
  - SUICIDAL IDEATION [None]
  - SUICIDE ATTEMPT [None]
  - TEARFULNESS [None]
  - URINARY RETENTION [None]
  - URINARY TRACT INFECTION [None]
  - VOMITING [None]
